FAERS Safety Report 20633695 (Version 1)
Quarter: 2022Q1

REPORT INFORMATION
  Report Type: Report from Study
  Country: EG (occurrence: None)
  Receive Date: 20220324
  Receipt Date: 20220324
  Transmission Date: 20220423
  Serious: Yes (Other)
  Sender: FDA-Public Use
  Company Number: EG-Merck Healthcare KGaA-9307012

PATIENT
  Age: 29 Year
  Sex: Female

DRUGS (1)
  1. MAVENCLAD [Suspect]
     Active Substance: CLADRIBINE
     Indication: Multiple sclerosis
     Route: 048
     Dates: start: 20211030

REACTIONS (1)
  - Fistulotomy [Unknown]

NARRATIVE: CASE EVENT DATE: 20220316
